FAERS Safety Report 19840206 (Version 4)
Quarter: 2021Q4

REPORT INFORMATION
  Report Type: Spontaneous
  Country: US (occurrence: US)
  Receive Date: 20210916
  Receipt Date: 20211110
  Transmission Date: 20220303
  Serious: Yes (Life-Threatening, Hospitalization, Disabling, Other)
  Sender: FDA-Public Use
  Company Number: US-009507513-2109USA002808

PATIENT
  Sex: Female

DRUGS (2)
  1. KEYTRUDA [Suspect]
     Active Substance: PEMBROLIZUMAB
     Indication: Renal cancer
     Dosage: RECEIVED SINGLE INFUSION
     Dates: start: 202107, end: 202107
  2. KEYTRUDA [Suspect]
     Active Substance: PEMBROLIZUMAB
     Indication: Metastases to lung

REACTIONS (15)
  - Mobility decreased [Not Recovered/Not Resolved]
  - Paralysis [Not Recovered/Not Resolved]
  - Ill-defined disorder [Unknown]
  - Speech disorder [Unknown]
  - Dysphagia [Unknown]
  - Inflammation [Unknown]
  - Surgery [Unknown]
  - Respiratory disorder [Unknown]
  - Asthenia [Not Recovered/Not Resolved]
  - Fatigue [Unknown]
  - Neuromyopathy [Unknown]
  - Neuropathic muscular atrophy [Not Recovered/Not Resolved]
  - Mental disorder [Unknown]
  - Gait inability [Not Recovered/Not Resolved]
  - Post-traumatic stress disorder [Unknown]

NARRATIVE: CASE EVENT DATE: 20210101
